FAERS Safety Report 9820596 (Version 1)
Quarter: 2013Q4

REPORT INFORMATION
  Report Type: Spontaneous
  Country: US (occurrence: None)
  Receive Date: 20131028
  Receipt Date: 20131028
  Transmission Date: 20140711
  Serious: Yes (Other)
  Sender: FDA-Public Use
  Company Number: 2013US001639

PATIENT
  Age: 41 Year
  Sex: Female
  Weight: 88 kg

DRUGS (12)
  1. ICLUSIG [Suspect]
     Indication: CHRONIC MYELOID LEUKAEMIA
     Route: 048
     Dates: start: 201301
  2. HYDROCODONE (HYDROCODONE) [Concomitant]
  3. PROCRIT (ERYTHROPOIETIN) [Concomitant]
  4. ZOFRAN (ONDANSETRON) [Concomitant]
  5. METHYLPREDNISOLONE (METHYLPREDNISOLONE) [Concomitant]
  6. ZANTAC (RANITIDINE HYDROCHLORIDE) [Concomitant]
  7. COLACE [Concomitant]
  8. GABAPENTIN (GABAPENTIN) [Concomitant]
  9. VITAMIN D3 (VITAMIN D3) [Concomitant]
  10. ALLOPURINOL (ALLOPURINOL) [Concomitant]
  11. PREDNISOLONE ACETATE (PREDNISOLONE ACETATE) [Concomitant]
  12. BRIMONIDINE (BRIMONIDINE) [Concomitant]

REACTIONS (1)
  - Joint swelling [None]
